FAERS Safety Report 22065721 (Version 1)
Quarter: 2023Q1

REPORT INFORMATION
  Report Type: Spontaneous
  Country: US (occurrence: US)
  Receive Date: 20230306
  Receipt Date: 20230306
  Transmission Date: 20230418
  Serious: Yes (Other)
  Sender: FDA-Public Use
  Company Number: US-MEDEXUS PHARMA, INC.-2023MED00064

PATIENT
  Age: 14 Year
  Sex: Male

DRUGS (1)
  1. RASUVO [Suspect]
     Active Substance: METHOTREXATE SODIUM
     Dosage: UNK UNK, 1X/WEEK USUALLY ON MONDAYS
     Dates: start: 20221215

REACTIONS (4)
  - Terminal state [Not Recovered/Not Resolved]
  - Device physical property issue [Not Recovered/Not Resolved]
  - Device delivery system issue [Not Recovered/Not Resolved]
  - Product dose omission issue [Recovered/Resolved]

NARRATIVE: CASE EVENT DATE: 20221201
